FAERS Safety Report 4626512-3 (Version None)
Quarter: 2005Q2

REPORT INFORMATION
  Report Type: 
  Country: None (occurrence: None)
  Receive Date: 20050404
  Receipt Date: 20050114
  Transmission Date: 20051028
  Serious: Yes (Death)
  Sender: FDA-Public Use
  Company Number: US-MERCK-0501USA02035

PATIENT
  Age: 78 Year
  Sex: Male

DRUGS (10)
  1. VIOXX [Suspect]
     Indication: PAIN
     Route: 048
     Dates: end: 20040921
  2. LIPITOR [Concomitant]
     Route: 065
  3. [THERAPY UNSPECIFIED] [Concomitant]
     Route: 065
  4. COUMADIN [Concomitant]
     Route: 065
  5. WARFARIN [Concomitant]
     Route: 065
  6. BUMEX [Concomitant]
     Route: 048
  7. POTASSIUM CHLORIDE [Concomitant]
     Route: 048
  8. DOXAZOSIN MESYLATE [Concomitant]
     Route: 048
  9. LANOXIN [Concomitant]
     Route: 065
  10. ERYTHROMYCIN STEARATE [Concomitant]
     Route: 065

REACTIONS (4)
  - ARRHYTHMIA [None]
  - EPISTAXIS [None]
  - PROTHROMBIN TIME PROLONGED [None]
  - PRURITUS [None]
